FAERS Safety Report 11158553 (Version 3)
Quarter: 2015Q3

REPORT INFORMATION
  Report Type: Spontaneous
  Country: US (occurrence: US)
  Receive Date: 20150603
  Receipt Date: 20150716
  Transmission Date: 20151125
  Serious: Yes (Other)
  Sender: FDA-Public Use
  Company Number: US-BAYER-2015-291415

PATIENT
  Age: 37 Year
  Sex: Female

DRUGS (1)
  1. BETASERON [Suspect]
     Active Substance: INTERFERON BETA-1B
     Indication: PRIMARY PROGRESSIVE MULTIPLE SCLEROSIS
     Dosage: UNK

REACTIONS (10)
  - Scoliosis [None]
  - Fibromyalgia [None]
  - Alopecia [None]
  - Off label use [None]
  - Hepatic enzyme increased [Not Recovered/Not Resolved]
  - Fear of injection [None]
  - Cardiac disorder [None]
  - Nervousness [None]
  - Tremor [None]
  - Cataract [None]

NARRATIVE: CASE EVENT DATE: 2005
